FAERS Safety Report 8530517-X (Version None)
Quarter: 2012Q3

REPORT INFORMATION
  Report Type: 
  Country: None (occurrence: None)
  Receive Date: 20120723
  Receipt Date: 20120716
  Transmission Date: 20120928
  Serious: Yes (Other)
  Sender: FDA-Public Use
  Company Number: FR-PFIZER INC-2012163711

PATIENT
  Age: 9 Year
  Sex: Female

DRUGS (4)
  1. SOMATROPIN RDNA [Suspect]
     Dosage: 5.4 MG, WEEKLY
     Dates: start: 20070521, end: 20100901
  2. HYDROCORTISONE [Concomitant]
     Dosage: UNK
     Route: 048
     Dates: start: 20060216
  3. LEVOTHYROXINE SODIUM [Concomitant]
     Indication: HYPOTHYROIDISM
     Dosage: UNK
     Route: 048
     Dates: start: 20060216
  4. MINIRIN ^AVENTIS PHARMA^ [Concomitant]
     Dosage: UNK
     Route: 048
     Dates: start: 20060216

REACTIONS (2)
  - GLIOMA [None]
  - NEOPLASM RECURRENCE [None]
